FAERS Safety Report 7157697-5 (Version None)
Quarter: 2010Q4

REPORT INFORMATION
  Report Type: 
  Country: None (occurrence: None)
  Receive Date: 20101214
  Receipt Date: 20100317
  Transmission Date: 20110411
  Serious: No
  Sender: FDA-Public Use
  Company Number: US-ASTRAZENECA-2010SE11684

PATIENT
  Age: 71 Year
  Sex: Female
  Weight: 54.4 kg

DRUGS (3)
  1. CRESTOR [Suspect]
     Indication: BLOOD CHOLESTEROL INCREASED
     Route: 048
     Dates: start: 20090101
  2. CARDIZEM [Concomitant]
  3. SYNTHROID [Concomitant]
     Indication: HYPERTHYROIDISM

REACTIONS (1)
  - VITAMIN D DECREASED [None]
